FAERS Safety Report 5200701-1 (Version None)
Quarter: 2006Q4

REPORT INFORMATION
  Report Type: 
  Country: None (occurrence: None)
  Receive Date: 20061016
  Receipt Date: 20060627
  Transmission Date: 20070319
  Serious: No
  Sender: FDA-Public Use
  Company Number: 2006SP002562

PATIENT
  Age: 34 Year
  Sex: Female
  Weight: 56.6996 kg

DRUGS (6)
  1. LUNESTA [Suspect]
     Indication: INSOMNIA
     Dosage: 2 MG; PRN; ORAL; SEE IMAGE
     Route: 048
     Dates: start: 20060201, end: 20060501
  2. LUNESTA [Suspect]
     Indication: INSOMNIA
     Dosage: 2 MG; PRN; ORAL; SEE IMAGE
     Route: 048
     Dates: start: 20060623, end: 20060627
  3. LUNESTA [Suspect]
     Indication: INSOMNIA
     Dosage: 2 MG; PRN; ORAL; SEE IMAGE
     Route: 048
     Dates: start: 20060704
  4. WELLBUTRIN [Concomitant]
  5. TOPAMAX [Concomitant]
  6. SUMATRIPTAN SUCCINATE [Concomitant]

REACTIONS (2)
  - DRUG INEFFECTIVE [None]
  - INSOMNIA [None]
